FAERS Safety Report 22124110 (Version 3)
Quarter: 2023Q2

REPORT INFORMATION
  Report Type: Spontaneous
  Country: US (occurrence: US)
  Receive Date: 20230322
  Receipt Date: 20230413
  Transmission Date: 20230722
  Serious: Yes (Other)
  Sender: FDA-Public Use
  Company Number: US-BRISTOL-MYERS SQUIBB COMPANY-2023-038466

PATIENT
  Age: 67 Year
  Sex: Male

DRUGS (2)
  1. POMALYST [Suspect]
     Active Substance: POMALIDOMIDE
     Indication: Plasma cell myeloma
     Dosage: TAKE 1 CAPSULE EVERY DAY ON
     Route: 048
  2. POMALYST [Suspect]
     Active Substance: POMALIDOMIDE
     Dosage: TAKE 1 CAPSULE (3MG) BY MOUTH EVERY DAY ON DAYS 1-21 OF A 28 DAY TREATMENT CYCLE
     Route: 048
     Dates: start: 20230206

REACTIONS (2)
  - Neutropenia [Recovered/Resolved]
  - Laboratory test abnormal [Unknown]
